FAERS Safety Report 4914938-X (Version None)
Quarter: 2006Q1

REPORT INFORMATION
  Report Type: 
  Country: None (occurrence: None)
  Receive Date: 20060217
  Receipt Date: 20051115
  Transmission Date: 20060701
  Serious: Yes (Other)
  Sender: FDA-Public Use
  Company Number: PHEH2005US12568

PATIENT
  Age: 59 Year
  Sex: Female

DRUGS (2)
  1. PAMIDRONATE DISODIUM [Suspect]
     Indication: BREAST CANCER
     Dosage: 90 MG EVERY MONTH
     Dates: start: 19990805, end: 20051221
  2. WARFARIN [Concomitant]
     Indication: DEEP VEIN THROMBOSIS

REACTIONS (7)
  - BONE FORMATION INCREASED [None]
  - BONE SWELLING [None]
  - DENTAL PROSTHESIS USER [None]
  - EXOSTOSIS [None]
  - OSTEONECROSIS [None]
  - OSTEOPETROSIS [None]
  - PAIN IN JAW [None]
